FAERS Safety Report 4824606-0 (Version None)
Quarter: 2005Q4

REPORT INFORMATION
  Report Type: 
  Country: None (occurrence: None)
  Receive Date: 20051108
  Receipt Date: 20051027
  Transmission Date: 20060501
  Serious: No
  Sender: FDA-Public Use
  Company Number: EWC050946071

PATIENT
  Age: 40 Year
  Sex: Female

DRUGS (4)
  1. CYMBALTA [Suspect]
     Indication: ANXIETY
     Dosage: 60 MG/1 DAY
     Dates: start: 20050401
  2. CYMBALTA [Suspect]
     Indication: PANIC DISORDER
     Dosage: 60 MG/1 DAY
     Dates: start: 20050401
  3. CLOMIPRAMINE [Concomitant]
  4. ALPRAZOLAM [Concomitant]

REACTIONS (3)
  - BLOOD PROLACTIN INCREASED [None]
  - MEDICATION ERROR [None]
  - WEIGHT INCREASED [None]
